FAERS Safety Report 4783198-5 (Version None)
Quarter: 2005Q3

REPORT INFORMATION
  Report Type: 
  Country: None (occurrence: None)
  Receive Date: 20050929
  Receipt Date: 20050916
  Transmission Date: 20060218
  Serious: Yes (Hospitalization)
  Sender: FDA-Public Use
  Company Number: BE-GLAXOSMITHKLINE-B0394705A

PATIENT
  Age: 58 Year
  Sex: Male

DRUGS (3)
  1. IMITREX [Suspect]
     Indication: MIGRAINE
     Route: 048
  2. AERIUS [Concomitant]
     Indication: SINUSITIS
  3. NASONEX [Concomitant]
     Indication: SINUSITIS

REACTIONS (1)
  - PETECHIAE [None]
